FAERS Safety Report 9649770 (Version 1)
Quarter: 2013Q4

REPORT INFORMATION
  Report Type: Spontaneous
  Country: US (occurrence: US)
  Receive Date: 20131028
  Receipt Date: 20131028
  Transmission Date: 20140711
  Serious: Yes (Other)
  Sender: FDA-Public Use
  Company Number: US-NAPPMUNDI-USA-2012-0095101

PATIENT
  Sex: Male

DRUGS (2)
  1. OXYCODONE HCL IMMEDIATE RELEASE (91-490) [Suspect]
     Indication: NECK PAIN
     Dosage: 30 MG, QID
     Route: 048
  2. COCAINE [Suspect]
     Indication: SUBSTANCE ABUSE

REACTIONS (1)
  - Substance abuse [Unknown]
